FAERS Safety Report 8291713-2 (Version None)
Quarter: 2012Q2

REPORT INFORMATION
  Report Type: 
  Country: None (occurrence: None)
  Receive Date: 20120417
  Receipt Date: 20110719
  Transmission Date: 20120825
  Serious: No
  Sender: FDA-Public Use
  Company Number: US-ASTRAZENECA-2011SE42910

PATIENT
  Sex: Male

DRUGS (2)
  1. NEXIUM [Suspect]
     Route: 048
     Dates: end: 20110101
  2. PREVACID [Suspect]
     Route: 065
     Dates: start: 20110101

REACTIONS (4)
  - FEELING ABNORMAL [None]
  - ABDOMINAL PAIN [None]
  - DRUG INEFFECTIVE [None]
  - DRUG DOSE OMISSION [None]
